FAERS Safety Report 15196404 (Version 1)
Quarter: 2018Q3

REPORT INFORMATION
  Report Type: Spontaneous
  Country: US (occurrence: US)
  Receive Date: 20180626
  Receipt Date: 20180626
  Transmission Date: 20181010
  Serious: Yes (Other)
  Sender: FDA-Public Use
  Company Number: None

PATIENT
  Age: 36 Year
  Sex: Male
  Weight: 72 kg

DRUGS (6)
  1. FLUTICASONE PROPIONATE NASAL SPRAY USP 50 MCG [Suspect]
     Active Substance: FLUTICASONE PROPIONATE
     Indication: SINUS DISORDER
     Dosage: ?          OTHER STRENGTH:MCG;QUANTITY:4 SPRAY(S);?
     Route: 055
     Dates: start: 20180201, end: 20180331
  2. CENTRUM [Concomitant]
     Active Substance: VITAMINS
  3. FISH OIL [Concomitant]
     Active Substance: FISH OIL
  4. PANTOPRAZOLE [Concomitant]
     Active Substance: PANTOPRAZOLE
  5. ORAL INHALER [Concomitant]
  6. FLONASE [Concomitant]
     Active Substance: FLUTICASONE PROPIONATE

REACTIONS (5)
  - Poor quality drug administered [None]
  - Instillation site pain [None]
  - Instillation site haemorrhage [None]
  - Frustration tolerance decreased [None]
  - Product contamination physical [None]

NARRATIVE: CASE EVENT DATE: 20180201
